FAERS Safety Report 6675726-X (Version None)
Quarter: 2010Q2

REPORT INFORMATION
  Report Type: 
  Country: None (occurrence: None)
  Receive Date: 20100409
  Receipt Date: 20100401
  Transmission Date: 20101027
  Serious: Yes (Other)
  Sender: FDA-Public Use
  Company Number: US-AMGEN-QUU401940

PATIENT
  Sex: Male

DRUGS (2)
  1. ENBREL [Suspect]
     Indication: RHEUMATOID ARTHRITIS
     Route: 058
     Dates: start: 20090730, end: 20100318
  2. METHOTREXATE [Concomitant]
     Route: 058

REACTIONS (5)
  - ABDOMINAL DISTENSION [None]
  - ASTHENIA [None]
  - LYMPHOMA [None]
  - PAINFUL RESPIRATION [None]
  - PLATELET COUNT DECREASED [None]
